FAERS Safety Report 4900527-X (Version None)
Quarter: 2006Q1

REPORT INFORMATION
  Report Type: 
  Country: None (occurrence: None)
  Receive Date: 20060126
  Receipt Date: 20051103
  Transmission Date: 20060701
  Serious: Yes (Other)
  Sender: FDA-Public Use
  Company Number: USA0511112509

PATIENT
  Age: 14 Year
  Sex: Female
  Weight: 68.2 kg

DRUGS (2)
  1. PROZAC [Suspect]
     Indication: ASPERGER'S DISORDER
     Dosage: 20 MG
     Dates: start: 20050101
  2. STRATTERA [Suspect]
     Indication: ATTENTION DEFICIT/HYPERACTIVITY DISORDER
     Dates: start: 20050801

REACTIONS (4)
  - ANXIETY [None]
  - DEPRESSION [None]
  - MOOD SWINGS [None]
  - SOMNOLENCE [None]
